FAERS Safety Report 21771029 (Version 1)
Quarter: 2022Q4

REPORT INFORMATION
  Report Type: Spontaneous
  Country: GB (occurrence: None)
  Receive Date: 20221223
  Receipt Date: 20221223
  Transmission Date: 20230113
  Serious: Yes (Life-Threatening)
  Sender: FDA-Public Use
  Company Number: 2022A414889

PATIENT
  Sex: Female

DRUGS (1)
  1. ACALABRUTINIB [Suspect]
     Active Substance: ACALABRUTINIB
     Indication: Adverse drug reaction
     Route: 065
     Dates: start: 20201125, end: 20221203

REACTIONS (1)
  - Abscess fungal [Recovering/Resolving]

NARRATIVE: CASE EVENT DATE: 20221103
